FAERS Safety Report 21749990 (Version 2)
Quarter: 2022Q4

REPORT INFORMATION
  Report Type: Spontaneous
  Country: US (occurrence: US)
  Receive Date: 20221219
  Receipt Date: 20221228
  Transmission Date: 20230113
  Serious: No
  Sender: FDA-Public Use
  Company Number: US-BAYER-2022A169422

PATIENT
  Age: 61 Year
  Sex: Female

DRUGS (2)
  1. CLARITIN [Suspect]
     Active Substance: LORATADINE
     Indication: Hypersensitivity
     Dosage: 1 DF
     Route: 048
     Dates: start: 20221127, end: 20221129
  2. CLARITIN [Suspect]
     Active Substance: LORATADINE
     Indication: Nasopharyngitis

REACTIONS (4)
  - Rhinorrhoea [Recovered/Resolved]
  - Sneezing [Recovered/Resolved]
  - Pain [Recovered/Resolved]
  - Pain in extremity [Recovered/Resolved]

NARRATIVE: CASE EVENT DATE: 20221127
